FAERS Safety Report 9915512 (Version 2)
Quarter: 2014Q1

REPORT INFORMATION
  Report Type: Other
  Country: JP (occurrence: JP)
  Receive Date: 20140221
  Receipt Date: 20140307
  Transmission Date: 20141002
  Serious: Yes (Hospitalization, Other)
  Sender: FDA-Public Use
  Company Number: JP-BRISTOL-MYERS SQUIBB COMPANY-20237814

PATIENT
  Age: 58 Year
  Sex: Male

DRUGS (2)
  1. ABILIFY [Suspect]
     Indication: SCHIZOPHRENIFORM DISORDER
     Route: 048
  2. SERENACE [Suspect]
     Indication: SCHIZOPHRENIFORM DISORDER
     Route: 048

REACTIONS (2)
  - Stupor [Recovered/Resolved]
  - Ileus [Recovered/Resolved]
